FAERS Safety Report 9850395 (Version 1)
Quarter: 2014Q1

REPORT INFORMATION
  Report Type: Report from Study
  Country: AR (occurrence: AR)
  Receive Date: 20140128
  Receipt Date: 20140128
  Transmission Date: 20141002
  Serious: Yes (Hospitalization)
  Sender: FDA-Public Use
  Company Number: AR-BRISTOL-MYERS SQUIBB COMPANY-20068771

PATIENT
  Age: 60 Year
  Sex: Female

DRUGS (1)
  1. NULOJIX [Suspect]
     Indication: RENAL TRANSPLANT
     Dosage: 1DF: 3VIALS OF 250MG,INTERRUPTED: : 06JAN14
     Dates: start: 2006

REACTIONS (1)
  - Dialysis [Recovering/Resolving]
